FAERS Safety Report 23708336 (Version 1)
Quarter: 2024Q2

REPORT INFORMATION
  Report Type: Spontaneous
  Country: CH (occurrence: CH)
  Receive Date: 20240404
  Receipt Date: 20240404
  Transmission Date: 20240716
  Serious: Yes (Hospitalization, Other)
  Sender: FDA-Public Use
  Company Number: None

PATIENT
  Age: 77 Year
  Sex: Male
  Weight: 90 kg

DRUGS (14)
  1. AZACITIDINE [Suspect]
     Active Substance: AZACITIDINE
     Indication: Acute myeloid leukaemia
     Dosage: CYCLICAL
     Route: 058
     Dates: start: 20231110, end: 20231115
  2. PIPERACILLIN SODIUM\TAZOBACTAM SODIUM [Suspect]
     Active Substance: PIPERACILLIN SODIUM\TAZOBACTAM SODIUM
     Indication: Urinary tract infection
     Dosage: 4.5 G N/A DOSE EVERY N/A N/A
     Route: 041
     Dates: start: 20231109, end: 20231117
  3. VENETOCLAX [Suspect]
     Active Substance: VENETOCLAX
     Indication: Acute myeloid leukaemia
     Dosage: 100 MG N/A DOSE EVERY 1 DAY
     Route: 048
     Dates: start: 20231110, end: 20231112
  4. VENETOCLAX [Suspect]
     Active Substance: VENETOCLAX
     Dosage: 200 MG N/A DOSE EVERY 1 DAY
     Route: 048
     Dates: start: 20231113, end: 20231113
  5. VENETOCLAX [Suspect]
     Active Substance: VENETOCLAX
     Dosage: 400 MG N/A DOSE EVERY 1 DAY
     Route: 048
     Dates: start: 20231114, end: 20231122
  6. ALLOPURINOL [Concomitant]
     Active Substance: ALLOPURINOL
     Indication: Acute myeloid leukaemia
     Dosage: MORGENS
     Route: 048
     Dates: start: 20231110
  7. BISOPROLOL MEPHA [Concomitant]
     Indication: Atrial fibrillation
     Dosage: 1.25 MG N/A DOSE EVERY 1 DAY
     Route: 048
  8. ELIQUIS [Concomitant]
     Active Substance: APIXABAN
     Indication: Atrial fibrillation
     Dosage: 2.5 MG N/A DOSE EVERY 1 DAY
     Route: 048
     Dates: end: 20231107
  9. HUMAN RED BLOOD CELL [Concomitant]
     Active Substance: HUMAN RED BLOOD CELL
     Indication: Acute myeloid leukaemia
     Dosage: UNK
     Route: 065
  10. PANTOPRAZOLE SODIUM [Concomitant]
     Active Substance: PANTOPRAZOLE SODIUM
     Indication: Product used for unknown indication
     Dosage: 20 MG N/A DOSE EVERY 1 DAY
     Route: 048
  11. ROCEPHIN [Concomitant]
     Active Substance: CEFTRIAXONE SODIUM
     Indication: Urinary tract infection
     Dosage: 2 G N/A DOSE EVERY N/A N/A
     Route: 041
     Dates: start: 20231107, end: 20231109
  12. TAMSULOSIN [Concomitant]
     Active Substance: TAMSULOSIN
     Indication: Product used for unknown indication
     Dosage: 0.4 MG N/A DOSE EVERY 1 DAY
     Route: 048
  13. PLATELETS [Concomitant]
     Active Substance: HUMAN PLATELET, ALLOGENIC
     Indication: Acute myeloid leukaemia
     Dosage: UNK
     Route: 065
  14. VALTREX [Concomitant]
     Active Substance: VALACYCLOVIR HYDROCHLORIDE
     Indication: Infection prophylaxis
     Dosage: 200 MG N/A DOSE EVERY 12 HOUR
     Route: 048
     Dates: start: 20231110

REACTIONS (2)
  - Cardiac failure [Recovered/Resolved]
  - Atrial fibrillation [Recovered/Resolved]

NARRATIVE: CASE EVENT DATE: 20231112
